FAERS Safety Report 9602852 (Version 1)
Quarter: 2013Q4

REPORT INFORMATION
  Report Type: Spontaneous
  Country: US (occurrence: None)
  Receive Date: 20131003
  Receipt Date: 20131003
  Transmission Date: 20140711
  Serious: Yes (Other)
  Sender: FDA-Public Use
  Company Number: HA13-324-AE

PATIENT
  Age: 60 Year
  Sex: Male
  Weight: 117.94 kg

DRUGS (10)
  1. GABAPENTIN [Suspect]
     Indication: PAIN IN EXTREMITY
     Dosage: 1 CAPSULE
     Route: 048
  2. GABAPENTIN [Suspect]
     Indication: PAIN IN EXTREMITY
     Dosage: 1 CAPSULE
     Route: 048
  3. NEXIUM [Concomitant]
  4. DESVENLAFAXINE SUCCINATE MONHYDRATE (PRISTIQ) [Concomitant]
  5. PREVASTATIN TABLETS [Concomitant]
  6. CENTRUM SILVER [Concomitant]
  7. FISH OIL [Concomitant]
  8. MORPHINE [Concomitant]
  9. LITHIUM [Concomitant]
  10. PREGAMBLIN (LYRICA ) [Concomitant]

REACTIONS (8)
  - Rotator cuff syndrome [None]
  - Eye disorder [None]
  - Multiple sclerosis [None]
  - Drug ineffective [None]
  - Chronic inflammatory demyelinating polyradiculoneuropathy [None]
  - Lower limb fracture [None]
  - Lyme disease [None]
  - Tremor [None]
